FAERS Safety Report 23519139 (Version 2)
Quarter: 2025Q4

REPORT INFORMATION
  Report Type: Spontaneous
  Country: GB (occurrence: GB)
  Receive Date: 20240213
  Receipt Date: 20251211
  Transmission Date: 20260118
  Serious: Yes (Other)
  Sender: BAUSCH AND LOMB
  Company Number: GB-MLMSERVICE-20240201-4812889-1

PATIENT
  Age: 69 Year
  Sex: Female

DRUGS (2)
  1. DICLOFENAC [Suspect]
     Active Substance: DICLOFENAC
     Indication: Back pain
     Dosage: FOR SEVERAL YEARS
     Route: 065
  2. IRON [Concomitant]
     Active Substance: IRON
     Indication: Iron deficiency anaemia

REACTIONS (1)
  - Intestinal diaphragm disease [Recovering/Resolving]
